FAERS Safety Report 11034895 (Version 2)
Quarter: 2015Q2

REPORT INFORMATION
  Report Type: Spontaneous
  Country: US (occurrence: US)
  Receive Date: 20150415
  Receipt Date: 20150424
  Transmission Date: 20150821
  Serious: Yes (Hospitalization, Other)
  Sender: FDA-Public Use
  Company Number: US-SA-2015SA044702

PATIENT
  Age: 75 Year
  Sex: Female
  Weight: 102.06 kg

DRUGS (5)
  1. LANTUS SOLOSTAR [Suspect]
     Active Substance: INSULIN GLARGINE
     Indication: TYPE 2 DIABETES MELLITUS
     Dosage: DOSE:50 UNIT(S)
     Route: 065
     Dates: start: 2007
  2. HUMALOG KWIKPEN [Suspect]
     Active Substance: INSULIN LISPRO
     Indication: BLOOD GLUCOSE INCREASED
     Dosage: 20 UNITS PER MEAL DOSE:20 UNIT(S)
     Route: 065
     Dates: start: 2007
  3. LANTUS SOLOSTAR [Suspect]
     Active Substance: INSULIN GLARGINE
     Indication: TYPE 2 DIABETES MELLITUS
     Dosage: DOSE:50 UNIT(S)
     Route: 065
     Dates: start: 2007
  4. KWIKPEN [Concomitant]
     Indication: BLOOD GLUCOSE INCREASED
     Dosage: FREQUENCY: PER MEAL DOSE:20 UNIT(S)
     Dates: start: 2007
  5. SOLOSTAR [Concomitant]
     Active Substance: DEVICE
     Indication: DEVICE THERAPY

REACTIONS (6)
  - Visual acuity reduced [Unknown]
  - Clostridium difficile infection [Unknown]
  - Peritoneal dialysis [Unknown]
  - Pulmonary oedema [Unknown]
  - Haemodialysis [Unknown]
  - Drug administration error [Unknown]
